FAERS Safety Report 10036463 (Version 1)
Quarter: 2014Q1

REPORT INFORMATION
  Report Type: Spontaneous
  Country: US (occurrence: US)
  Receive Date: 20140326
  Receipt Date: 20140326
  Transmission Date: 20141002
  Serious: No
  Sender: FDA-Public Use
  Company Number: US-009507513-1403USA010623

PATIENT
  Sex: Female

DRUGS (1)
  1. COSOPT PF [Suspect]
     Dosage: 1 GTT, BID, 1 DROP IN LEFT EYE TWICE DAILY, 1 ML CARTON WITH TWO POUCHES OF 15 AMPOULE EACH
     Route: 047

REACTIONS (3)
  - Wrong technique in drug usage process [Unknown]
  - Product quality issue [Unknown]
  - No adverse event [Unknown]
